FAERS Safety Report 17097749 (Version 1)
Quarter: 2019Q4

REPORT INFORMATION
  Report Type: Spontaneous
  Country: PL (occurrence: PL)
  Receive Date: 20191202
  Receipt Date: 20191202
  Transmission Date: 20200122
  Serious: Yes (Death, Life-Threatening, Other)
  Sender: FDA-Public Use
  Company Number: NVSC2019PL052822

PATIENT
  Sex: Female

DRUGS (10)
  1. PACLITAXEL. [Interacting]
     Active Substance: PACLITAXEL
     Indication: CHRONIC MYELOID LEUKAEMIA
     Dosage: UNK
     Route: 065
     Dates: start: 201607, end: 201707
  2. LETROZOLE. [Interacting]
     Active Substance: LETROZOLE
     Indication: BREAST CANCER
     Dosage: UNK
     Route: 065
  3. IMATINIB. [Suspect]
     Active Substance: IMATINIB MESYLATE
     Indication: CHRONIC MYELOID LEUKAEMIA
     Dosage: UNK
     Route: 065
     Dates: start: 201601, end: 201707
  4. IMATINIB. [Interacting]
     Active Substance: IMATINIB MESYLATE
     Indication: MYELOID LEUKAEMIA
  5. TAMOXIFEN [Interacting]
     Active Substance: TAMOXIFEN
     Indication: BREAST CANCER
     Dosage: UNK
     Route: 065
  6. PACLITAXEL. [Interacting]
     Active Substance: PACLITAXEL
     Indication: BREAST CANCER
     Dosage: UNK EVERY WEEK
     Route: 065
  7. LETROZOLE. [Interacting]
     Active Substance: LETROZOLE
     Indication: HORMONE THERAPY
  8. VINORELBINE [Interacting]
     Active Substance: VINORELBINE TARTRATE
     Indication: PRODUCT USED FOR UNKNOWN INDICATION
     Dosage: UNK
     Route: 065
     Dates: start: 201710, end: 201804
  9. TAMOXIFEN [Interacting]
     Active Substance: TAMOXIFEN
     Indication: HORMONE THERAPY
  10. CAPECITABINE. [Suspect]
     Active Substance: CAPECITABINE
     Indication: PRODUCT USED FOR UNKNOWN INDICATION
     Dosage: UNK
     Route: 065

REACTIONS (3)
  - Chronic myeloid leukaemia [Fatal]
  - Drug interaction [Fatal]
  - Polyneuropathy [Fatal]

NARRATIVE: CASE EVENT DATE: 201601
